FAERS Safety Report 4651633-9 (Version None)
Quarter: 2005Q2

REPORT INFORMATION
  Report Type: 
  Country: None (occurrence: None)
  Receive Date: 20050404
  Receipt Date: 20041104
  Transmission Date: 20051028
  Serious: No
  Sender: FDA-Public Use
  Company Number: USA041183327

PATIENT
  Sex: Female

DRUGS (6)
  1. CYMBALTA [Suspect]
     Dosage: 120 MG
     Dates: start: 20041001
  2. ATENOLOL [Concomitant]
  3. LISINOPRIL [Concomitant]
  4. ZYRTEC [Concomitant]
  5. RHINOCORT AQUA (BUDESONIDE) [Concomitant]
  6. ACIPHEX [Concomitant]

REACTIONS (4)
  - ACCIDENTAL OVERDOSE [None]
  - MANIA [None]
  - MEDICATION ERROR [None]
  - WEIGHT DECREASED [None]
